FAERS Safety Report 6331641-2 (Version None)
Quarter: 2009Q3

REPORT INFORMATION
  Report Type: 
  Country: None (occurrence: None)
  Receive Date: 20090827
  Receipt Date: 20090820
  Transmission Date: 20100115
  Serious: Yes (Hospitalization, Other)
  Sender: FDA-Public Use
  Company Number: PHHY2009BR35052

PATIENT
  Age: 73 Year
  Sex: Male

DRUGS (2)
  1. FORASEQ [Suspect]
     Indication: PNEUMOTHORAX
     Dosage: 1 CAPSULE OF EACH TREATMENT EVERY 12 HOURS
  2. FORASEQ [Suspect]
     Indication: POSTOPERATIVE CARE

REACTIONS (2)
  - PNEUMOTHORAX [None]
  - SURGERY [None]
